FAERS Safety Report 17063415 (Version 2)
Quarter: 2019Q4

REPORT INFORMATION
  Report Type: Report from Study
  Country: AR (occurrence: AR)
  Receive Date: 20191122
  Receipt Date: 20191204
  Transmission Date: 20200122
  Serious: Yes (Hospitalization)
  Sender: FDA-Public Use
  Company Number: NVSC2019AR023246

PATIENT
  Sex: Male

DRUGS (8)
  1. CORTIPYREN (BETAMETHASONE) [Suspect]
     Active Substance: BETAMETHASONE
     Indication: HYPERSENSITIVITY
     Dosage: UNK
     Route: 065
  2. ROSUVASTATIN. [Concomitant]
     Active Substance: ROSUVASTATIN
     Indication: PRODUCT USED FOR UNKNOWN INDICATION
     Route: 065
  3. MEKINIST [Suspect]
     Active Substance: TRAMETINIB DIMETHYL SULFOXIDE
     Indication: PRODUCT USED FOR UNKNOWN INDICATION
     Dosage: 2 MG, QD
     Route: 065
     Dates: start: 20190823
  4. COTELLIC [Suspect]
     Active Substance: COBIMETINIB
     Indication: PYREXIA
     Route: 065
  5. CARVEDILOL. [Concomitant]
     Active Substance: CARVEDILOL
     Indication: PRODUCT USED FOR UNKNOWN INDICATION
     Route: 065
  6. VEMURAFENIB. [Suspect]
     Active Substance: VEMURAFENIB
     Indication: PYREXIA
     Dosage: UNK
     Route: 065
  7. TAFINLAR [Suspect]
     Active Substance: DABRAFENIB MESYLATE
     Indication: PRODUCT USED FOR UNKNOWN INDICATION
     Dosage: 300 MG, QD
     Route: 065
     Dates: start: 20190823
  8. ATLANSIL [Concomitant]
     Active Substance: AMIODARONE
     Indication: ARRHYTHMIA
     Route: 065

REACTIONS (4)
  - Hypersensitivity [Recovered/Resolved]
  - Blood glucose increased [Recovering/Resolving]
  - Pyrexia [Recovered/Resolved]
  - Rash [Recovered/Resolved]
